FAERS Safety Report 7494648-8 (Version None)
Quarter: 2011Q2

REPORT INFORMATION
  Report Type: 
  Country: None (occurrence: None)
  Receive Date: 20110520
  Receipt Date: 20110505
  Transmission Date: 20111010
  Serious: Yes (Hospitalization, Other)
  Sender: FDA-Public Use
  Company Number: US-AMGEN-USASP2011017325

PATIENT
  Age: 42 Year
  Sex: Male

DRUGS (6)
  1. ENBREL [Suspect]
     Indication: RHEUMATOID ARTHRITIS
     Dosage: 25 UNK, QWK
     Route: 058
     Dates: start: 20020101, end: 20101201
  2. VITAMIN B12                        /00056201/ [Concomitant]
     Dosage: 1000 UG, UNK PER DAY
  3. ATENOLOL [Concomitant]
     Indication: ATRIAL FIBRILLATION
     Dosage: 25 MG DAILY
     Dates: start: 20050101
  4. MELPHALAN HYDROCHLORIDE [Concomitant]
     Indication: RHEUMATOID ARTHRITIS
     Dosage: 5 MG DAILY
     Dates: start: 19850101
  5. ASPIRIN [Concomitant]
     Indication: ATRIAL FIBRILLATION
     Dosage: 81 MG DAILY
     Route: 048
     Dates: start: 20050101
  6. MULTI-VITAMINS [Concomitant]
     Dosage: UNK

REACTIONS (2)
  - VIRAL INFECTION [None]
  - MILLER FISHER SYNDROME [None]
